FAERS Safety Report 11169210 (Version 3)
Quarter: 2015Q3

REPORT INFORMATION
  Report Type: Spontaneous
  Country: US (occurrence: US)
  Receive Date: 20150605
  Receipt Date: 20150707
  Transmission Date: 20151125
  Serious: Yes (Hospitalization, Other)
  Sender: FDA-Public Use
  Company Number: PHHY2015US062853

PATIENT
  Sex: Female

DRUGS (10)
  1. LIORESAL [Suspect]
     Active Substance: BACLOFEN
     Indication: MUSCLE SPASTICITY
     Dosage: 1173.4 MCG/DAY
     Route: 037
  2. MICROGESTIN [Suspect]
     Active Substance: ETHINYL ESTRADIOL\NORETHINDRONE ACETATE
     Indication: PRODUCT USED FOR UNKNOWN INDICATION
     Dosage: UNK
     Route: 065
  3. LEXAPRO [Suspect]
     Active Substance: ESCITALOPRAM OXALATE
     Indication: PRODUCT USED FOR UNKNOWN INDICATION
     Dosage: 20 MG, QD (DAILY)
     Route: 065
  4. LIORESAL [Suspect]
     Active Substance: BACLOFEN
     Dosage: 720 UG, QD
     Route: 037
     Dates: start: 20150527
  5. LIORESAL [Suspect]
     Active Substance: BACLOFEN
     Dosage: 100 UG, UNK (BOLOUS)
     Dates: start: 20150423
  6. OXYTROL [Suspect]
     Active Substance: OXYBUTYNIN
     Indication: PRODUCT USED FOR UNKNOWN INDICATION
     Dosage: 1 DF, QW2 (24 HOUR PATCH, 2 TIMES WEEK)
     Route: 065
  7. VALIUM [Suspect]
     Active Substance: DIAZEPAM
     Indication: PRODUCT USED FOR UNKNOWN INDICATION
     Dosage: 2 DF, PRN (1 TO 2 TABLETS)
     Route: 065
  8. LIORESAL [Suspect]
     Active Substance: BACLOFEN
     Dosage: 1223.3 UG, QD
     Route: 037
  9. LIORESAL [Suspect]
     Active Substance: BACLOFEN
     Dosage: 1223 UG, QD
     Route: 037
  10. TRAZODONE [Suspect]
     Active Substance: TRAZODONE HYDROCHLORIDE
     Indication: PRODUCT USED FOR UNKNOWN INDICATION
     Dosage: 2 DF, PRN (1 TO 2 TABS AT BEDTIME)
     Route: 065

REACTIONS (13)
  - Respiratory tract congestion [Recovered/Resolved]
  - Hyperhidrosis [Recovered/Resolved]
  - Altered state of consciousness [Recovered/Resolved]
  - Pneumonia [Recovered/Resolved]
  - Drug withdrawal syndrome [Recovered/Resolved]
  - Constipation [Recovered/Resolved]
  - Musculoskeletal stiffness [Recovered/Resolved]
  - Agitation [Recovered/Resolved]
  - Confusional state [Recovered/Resolved]
  - Initial insomnia [Recovered/Resolved]
  - Hypertonia [Recovered/Resolved]
  - Muscle spasticity [Recovered/Resolved]
  - Tooth disorder [Recovered/Resolved]
